FAERS Safety Report 5267248-8 (Version None)
Quarter: 2007Q1

REPORT INFORMATION
  Report Type: 
  Country: None (occurrence: None)
  Receive Date: 20070316
  Receipt Date: 20070314
  Transmission Date: 20070707
  Serious: Yes (Hospitalization)
  Sender: FDA-Public Use
  Company Number: US-BRISTOL-MYERS SQUIBB COMPANY-13714563

PATIENT
  Sex: Male
  Weight: 86 kg

DRUGS (1)
  1. HYDROXYUREA [Suspect]
     Route: 048

REACTIONS (8)
  - ACCIDENTAL EXPOSURE [None]
  - CONFUSIONAL STATE [None]
  - COUGH [None]
  - DIZZINESS [None]
  - HALLUCINATION [None]
  - HEADACHE [None]
  - JOINT SWELLING [None]
  - RASH [None]
